FAERS Safety Report 15476007 (Version 2)
Quarter: 2018Q4

REPORT INFORMATION
  Report Type: Spontaneous
  Country: FR (occurrence: FR)
  Receive Date: 20181009
  Receipt Date: 20181116
  Transmission Date: 20190205
  Serious: Yes (Life-Threatening)
  Sender: FDA-Public Use
  Company Number: PHHY2018FR119235

PATIENT
  Age: 59 Year
  Sex: Male
  Weight: 80 kg

DRUGS (10)
  1. DOLIPRANE [Concomitant]
     Active Substance: ACETAMINOPHEN
     Indication: PRODUCT USED FOR UNKNOWN INDICATION
     Dosage: 1 G, UNK
     Route: 048
  2. METRONIDAZOLE. [Suspect]
     Active Substance: METRONIDAZOLE
     Indication: DIARRHOEA
     Dosage: 1500 MG, QD
     Route: 048
     Dates: start: 20170801, end: 20170803
  3. ACTONEL [Suspect]
     Active Substance: RISEDRONATE SODIUM
     Indication: OSTEOPOROSIS
     Dosage: 35 MG, QW
     Route: 048
     Dates: start: 2015, end: 20170807
  4. NASACORT [Concomitant]
     Active Substance: TRIAMCINOLONE ACETONIDE
     Indication: PRODUCT USED FOR UNKNOWN INDICATION
     Dosage: 2 SPRAYS IN EACH NOSTRIL
     Route: 045
  5. CEFTRIAXONE. [Suspect]
     Active Substance: CEFTRIAXONE
     Indication: EPIDIDYMITIS
     Dosage: 2 G, QD
     Route: 042
     Dates: start: 20170727, end: 20170803
  6. TILCOTIL [Suspect]
     Active Substance: TENOXICAM
     Indication: EPIDIDYMITIS
     Dosage: 20 MG, QD
     Route: 048
     Dates: start: 20170724, end: 20170727
  7. EVIPLERA [Suspect]
     Active Substance: EMTRICITABINE\RILPIVIRINE\TENOFOVIR DISOPROXIL FUMARATE
     Indication: HIV INFECTION
     Dosage: 1 ?G/L, QD (200 MG/245 MG/25 MG)
     Route: 048
     Dates: start: 2011
  8. DOXYCYCLINE. [Suspect]
     Active Substance: DOXYCYCLINE
     Indication: ANTIBIOTIC PROPHYLAXIS
     Dosage: 1500 MG, QD (1500 MG QD AND 200 MG)
     Route: 048
     Dates: start: 20170801, end: 20170803
  9. CACIT VITAMINE D3 [Concomitant]
     Active Substance: CALCIUM CARBONATE\CHOLECALCIFEROL
     Indication: OSTEOPOROSIS
     Dosage: 1 ?G/L, QD
     Route: 048
     Dates: start: 2015
  10. OFLOXACINE [Suspect]
     Active Substance: OFLOXACIN
     Indication: EPIDIDYMITIS
     Dosage: 400 MG, QD
     Route: 048
     Dates: start: 20170724, end: 20170803

REACTIONS (2)
  - Large intestine perforation [Recovered/Resolved with Sequelae]
  - Distal intestinal obstruction syndrome [Recovered/Resolved with Sequelae]

NARRATIVE: CASE EVENT DATE: 20170807
